FAERS Safety Report 10127654 (Version 2)
Quarter: 2014Q2

REPORT INFORMATION
  Report Type: Report from Study
  Country: DE (occurrence: DE)
  Receive Date: 20140428
  Receipt Date: 20140505
  Transmission Date: 20141212
  Serious: Yes (Hospitalization)
  Sender: FDA-Public Use
  Company Number: DE-ROCHE-1384293

PATIENT
  Age: 60 Year
  Sex: Female
  Weight: 74 kg

DRUGS (8)
  1. NAB-PACLITAXEL [Suspect]
     Indication: BREAST CANCER
     Dosage: LAST DOSE PRIOR TO SAE 07/04/2014
     Route: 042
     Dates: start: 20140113, end: 20140414
  2. PERTUZUMAB [Suspect]
     Indication: BREAST CANCER
     Dosage: LOADING DOSE
     Route: 042
  3. PERTUZUMAB [Suspect]
     Dosage: MAINTAINENCE DOSE LAST DOSE PRIOR TO SAE WAS 07/APR/2014.
     Route: 042
     Dates: start: 20131118
  4. TRASTUZUMAB [Suspect]
     Indication: BREAST CANCER
     Dosage: LOADING DOSE
     Route: 042
  5. TRASTUZUMAB [Suspect]
     Dosage: MAITENANCE DOSE, LAST DOSE PRIOR TO SAE WAS 07/APR/2014.
     Route: 042
     Dates: start: 20131118
  6. COAPROVEL [Concomitant]
     Indication: PRODUCT USED FOR UNKNOWN INDICATION
     Dosage: 300/25, 0.5 TBL
     Route: 065
  7. NEBIVOLOL [Concomitant]
     Indication: PRODUCT USED FOR UNKNOWN INDICATION
     Route: 065
  8. CLOPIDOGREL [Concomitant]
     Indication: PRODUCT USED FOR UNKNOWN INDICATION
     Dosage: 75
     Route: 065

REACTIONS (1)
  - General physical health deterioration [Recovered/Resolved]
